FAERS Safety Report 15109376 (Version 3)
Quarter: 2023Q1

REPORT INFORMATION
  Report Type: Report from Study
  Country: IT (occurrence: IT)
  Receive Date: 20180705
  Receipt Date: 20230225
  Transmission Date: 20230417
  Serious: Yes (Other)
  Sender: FDA-Public Use
  Company Number: IT-AUROBINDO-AUR-APL-2017-38263

PATIENT
  Age: 74 Year
  Sex: Female

DRUGS (8)
  1. AMOXICILLIN [Suspect]
     Active Substance: AMOXICILLIN
     Indication: Product used for unknown indication
     Dosage: 2MG/ML IN 0.9 PERCENT SODIUM CHLORIDE AND 20MG/ML IN 0.9 PERCENT SODIUM CHLORIDE)
     Route: 065
  2. AMOXICILLIN\CLAVULANIC ACID [Suspect]
     Active Substance: AMOXICILLIN\CLAVULANIC ACID
     Indication: Product used for unknown indication
     Dosage: UNK
     Route: 065
  3. CEFADROXIL [Suspect]
     Active Substance: CEFADROXIL
     Indication: Product used for unknown indication
     Dosage: 2MG/ML IN 0.9% SODIUM CHLORIDE
     Route: 023
  4. CEFADROXIL [Suspect]
     Active Substance: CEFADROXIL
     Dosage: 20MG/ML IN 0.9% SODIUM CHLORIDE
     Route: 023
  5. CEPHALEXIN [Suspect]
     Active Substance: CEPHALEXIN
     Indication: Product used for unknown indication
     Dosage: 20MG/ML IN 0.9% SODIUM CHLORIDE
     Route: 023
  6. CEPHALEXIN [Suspect]
     Active Substance: CEPHALEXIN
     Dosage: 2MG/ML IN 0.9% SODIUM CHLORIDE
     Route: 023
  7. CEFACLOR [Suspect]
     Active Substance: CEFACLOR
     Indication: Product used for unknown indication
     Dosage: 2MG/ML IN 0.9% SODIUM CHLORIDE.
     Route: 023
  8. CEFACLOR [Suspect]
     Active Substance: CEFACLOR
     Dosage: 20MG/ML IN 0.9% SODIUM CHLORIDE. ()
     Route: 023

REACTIONS (4)
  - Type IV hypersensitivity reaction [Unknown]
  - Oedema [Unknown]
  - Rash maculo-papular [Unknown]
  - Cross sensitivity reaction [Unknown]
